FAERS Safety Report 7800738-X (Version None)
Quarter: 2011Q4

REPORT INFORMATION
  Report Type: 
  Country: None (occurrence: None)
  Receive Date: 20111006
  Receipt Date: 20111004
  Transmission Date: 20120403
  Serious: Yes (Other)
  Sender: FDA-Public Use
  Company Number: PT-PFIZER INC-2011224230

PATIENT
  Age: 19 Year
  Sex: Female

DRUGS (2)
  1. PREDNISOLONE [Suspect]
  2. METHYLPREDNISOLONE [Suspect]

REACTIONS (2)
  - DRUG INEFFECTIVE [None]
  - SYSTEMIC LUPUS ERYTHEMATOSUS [None]
